FAERS Safety Report 23202470 (Version 1)
Quarter: 2023Q4

REPORT INFORMATION
  Report Type: Spontaneous
  Country: IE (occurrence: IE)
  Receive Date: 20231120
  Receipt Date: 20231120
  Transmission Date: 20240109
  Serious: Yes (Hospitalization)
  Sender: FDA-Public Use
  Company Number: IE-STERISCIENCE B.V.-2023-ST-002191

PATIENT
  Age: 35 Year
  Sex: Female

DRUGS (4)
  1. BUPIVACAINE [Suspect]
     Active Substance: BUPIVACAINE
     Indication: Spinal anaesthesia
     Dosage: 2.2 MILLILITER
     Route: 037
  2. FENTANYL [Suspect]
     Active Substance: FENTANYL\FENTANYL CITRATE
     Indication: Spinal anaesthesia
     Dosage: 15 MICROGRAM
     Route: 037
  3. MORPHINE [Suspect]
     Active Substance: MORPHINE
     Indication: Spinal anaesthesia
     Dosage: 150 MICROGRAM
     Route: 037
  4. DEXTROSE [Suspect]
     Active Substance: DEXTROSE\DEXTROSE MONOHYDRATE
     Indication: Supplementation therapy
     Dosage: UNK
     Route: 042

REACTIONS (3)
  - Anaesthetic complication [Recovered/Resolved]
  - Nervous system disorder [Recovered/Resolved]
  - Maternal exposure during delivery [Unknown]
